FAERS Safety Report 15009504 (Version 1)
Quarter: 2018Q2

REPORT INFORMATION
  Report Type: Spontaneous
  Country: US (occurrence: US)
  Receive Date: 20180614
  Receipt Date: 20180614
  Transmission Date: 20180711
  Serious: No
  Sender: FDA-Public Use
  Company Number: US-009507513-1805USA007218

PATIENT
  Age: 57 Year
  Sex: Female

DRUGS (1)
  1. INTRON A [Suspect]
     Active Substance: INTERFERON ALFA-2B
     Indication: MYCOSIS FUNGOIDES
     Dosage: 500000 UNITS, THREE TIMES WEEKLY
     Route: 030
     Dates: start: 20170908, end: 20180510

REACTIONS (2)
  - Therapy cessation [Unknown]
  - Depression [Unknown]

NARRATIVE: CASE EVENT DATE: 20180510
